FAERS Safety Report 20993240 (Version 2)
Quarter: 2022Q2

REPORT INFORMATION
  Report Type: Report from Study
  Country: CA (occurrence: CA)
  Receive Date: 20220622
  Receipt Date: 20220622
  Transmission Date: 20220720
  Serious: Yes (Other)
  Sender: FDA-Public Use
  Company Number: CA-PFIZER INC-202200845418

PATIENT
  Age: 4 Decade
  Sex: Female

DRUGS (1)
  1. METHOTREXATE SODIUM [Suspect]
     Active Substance: METHOTREXATE SODIUM
     Indication: Corneal epithelial downgrowth
     Dosage: 400 UG IN 0.1 ML, WEEKLY
     Route: 031

REACTIONS (4)
  - Retinal detachment [Unknown]
  - Hypotony of eye [Unknown]
  - Glaucoma [Unknown]
  - Keratopathy [Unknown]
